FAERS Safety Report 9237315 (Version 1)
Quarter: 2013Q2

REPORT INFORMATION
  Report Type: Spontaneous
  Country: FR (occurrence: FR)
  Receive Date: 20130417
  Receipt Date: 20130417
  Transmission Date: 20140414
  Serious: Yes (Hospitalization)
  Sender: FDA-Public Use
  Company Number: FR-ELI_LILLY_AND_COMPANY-FR201304002501

PATIENT
  Age: 69 Year
  Sex: Female

DRUGS (16)
  1. FORSTEO [Suspect]
     Dosage: UNK, UNKNOWN
     Route: 058
     Dates: start: 20121214, end: 20130127
  2. EUPANTOL [Concomitant]
     Dosage: UNK, UNKNOWN
     Route: 048
     Dates: end: 20130127
  3. APROVEL [Concomitant]
     Dosage: UNK, UNKNOWN
     Route: 048
     Dates: end: 20130127
  4. CACIT VITAMINE D3 [Concomitant]
     Dosage: UNK, UNKNOWN
     Route: 048
     Dates: end: 20130127
  5. COUMADINE [Concomitant]
     Dosage: UNK, UNKNOWN
     Route: 048
     Dates: end: 20130127
  6. DISCOTRINE [Concomitant]
     Dosage: UNK, UNKNOWN
     Route: 062
     Dates: end: 20130127
  7. PARACETAMOL [Concomitant]
     Dosage: UNK, UNKNOWN
     Route: 048
     Dates: end: 20130127
  8. TRAMADOL [Concomitant]
     Dosage: UNK, UNKNOWN
     Route: 048
     Dates: end: 20130127
  9. KALEORID [Concomitant]
     Dosage: UNK, UNKNOWN
     Route: 048
     Dates: end: 20130127
  10. ORACILLINE [Concomitant]
     Dosage: UNK, UNKNOWN
     Route: 065
  11. TAHOR [Concomitant]
     Dosage: UNK, UNKNOWN
     Route: 065
  12. HYDROCORTISONE [Concomitant]
     Dosage: UNK, UNKNOWN
     Route: 065
  13. FORLAX [Concomitant]
     Dosage: UNK, UNKNOWN
     Route: 065
  14. MAXIDROL [Concomitant]
     Dosage: UNK, UNKNOWN
     Route: 065
  15. INDOCOLLYRE [Concomitant]
     Dosage: UNK, UNKNOWN
     Route: 065
  16. MYDRIATICUM [Concomitant]
     Dosage: UNK, UNKNOWN
     Route: 065

REACTIONS (1)
  - Thrombocytopenic purpura [Recovered/Resolved]
